FAERS Safety Report 16720222 (Version 3)
Quarter: 2019Q4

REPORT INFORMATION
  Report Type: Spontaneous
  Country: US (occurrence: US)
  Receive Date: 20190820
  Receipt Date: 20191107
  Transmission Date: 20200122
  Serious: Yes (Other)
  Sender: FDA-Public Use
  Company Number: US-LEXICON PHARMACEUTICALS, INC-19-1606-00790

PATIENT
  Sex: Female

DRUGS (2)
  1. SOMATULINE [Concomitant]
     Active Substance: LANREOTIDE ACETATE
  2. XERMELO [Suspect]
     Active Substance: TELOTRISTAT ETHYL
     Indication: NEOPLASM MALIGNANT
     Route: 048
     Dates: start: 20190712

REACTIONS (5)
  - Disease progression [Unknown]
  - Pain [Not Recovered/Not Resolved]
  - Constipation [Not Recovered/Not Resolved]
  - Serum serotonin increased [Recovering/Resolving]
  - Diarrhoea [Not Recovered/Not Resolved]
